FAERS Safety Report 15584637 (Version 1)
Quarter: 2018Q4

REPORT INFORMATION
  Report Type: Spontaneous
  Country: US (occurrence: US)
  Receive Date: 20181105
  Receipt Date: 20181105
  Transmission Date: 20190205
  Serious: No
  Sender: FDA-Public Use
  Company Number: US-009507513-1810USA013665

PATIENT
  Sex: Female

DRUGS (1)
  1. NUVARING [Suspect]
     Active Substance: ETHINYL ESTRADIOL\ETONOGESTREL
     Dosage: 1 DOSAGE FORM
     Route: 067

REACTIONS (3)
  - Device breakage [Unknown]
  - Device expulsion [Unknown]
  - Malaise [Unknown]

NARRATIVE: CASE EVENT DATE: 20181026
